FAERS Safety Report 24036562 (Version 1)
Quarter: 2024Q2

REPORT INFORMATION
  Report Type: Spontaneous
  Country: US (occurrence: None)
  Receive Date: 20240630
  Receipt Date: 20240630
  Transmission Date: 20240716
  Serious: Yes (unspecified)
  Sender: FDA-Public Use
  Company Number: None

PATIENT
  Age: 52 Year
  Sex: Female

DRUGS (1)
  1. SEMAGLUTIDE [Suspect]
     Active Substance: SEMAGLUTIDE
     Indication: Weight decreased
     Dosage: OTHER QUANTITY : 4 ML?OTHER FREQUENCY : ONCE WEEKLY?
     Route: 058

REACTIONS (2)
  - Weight decreased [None]
  - Suicidal ideation [None]

NARRATIVE: CASE EVENT DATE: 20240607
